FAERS Safety Report 24401408 (Version 1)
Quarter: 2024Q4

REPORT INFORMATION
  Report Type: Spontaneous
  Country: FR (occurrence: FR)
  Receive Date: 20241007
  Receipt Date: 20241007
  Transmission Date: 20250115
  Serious: Yes (Other)
  Sender: JOHNSON AND JOHNSON
  Company Number: None

PATIENT
  Age: 47 Year
  Sex: Male
  Weight: 130 kg

DRUGS (1)
  1. REMICADE [Suspect]
     Active Substance: INFLIXIMAB
     Indication: Cardiac sarcoidosis
     Route: 041
     Dates: start: 20210112, end: 202311

REACTIONS (2)
  - Lupus-like syndrome [Recovering/Resolving]
  - DNA antibody positive [Recovering/Resolving]

NARRATIVE: CASE EVENT DATE: 20231001
